FAERS Safety Report 4279400-9 (Version None)
Quarter: 2004Q1

REPORT INFORMATION
  Report Type: 
  Country: None (occurrence: None)
  Receive Date: 20040127
  Receipt Date: 20030129
  Transmission Date: 20041129
  Serious: No
  Sender: FDA-Public Use
  Company Number: US-BRISTOL-MYERS SQUIBB COMPANY-12170312

PATIENT
  Age: 50 Year
  Sex: Female
  Weight: 60 kg

DRUGS (6)
  1. DOVONEX [Suspect]
  2. AVELOX [Concomitant]
     Dates: start: 20030123
  3. PROZAC [Concomitant]
     Dosage: DURATION OF THERAPY SEVERAL YEARS, MAYBE 3.
  4. TRAZODONE HCL [Concomitant]
     Dosage: DURATION OF THERAPY OCCASIONALLY, ABOUT 3 YEARS.
  5. PRIMROSE OIL [Concomitant]
  6. VITAMIN A [Concomitant]

REACTIONS (4)
  - DRY SKIN [None]
  - ERYTHEMA [None]
  - HYPERSENSITIVITY [None]
  - RASH SCALY [None]
